FAERS Safety Report 20119386 (Version 2)
Quarter: 2022Q4

REPORT INFORMATION
  Report Type: Spontaneous
  Country: IN (occurrence: IN)
  Receive Date: 20211126
  Receipt Date: 20221104
  Transmission Date: 20230112
  Serious: Yes (Death, Other)
  Sender: FDA-Public Use
  Company Number: IN-PFIZER INC-202101587835

PATIENT
  Age: 46 Year
  Sex: Male

DRUGS (2)
  1. LORLATINIB [Suspect]
     Active Substance: LORLATINIB
     Dosage: 100 MG, 1X/DAY
     Route: 048
     Dates: start: 20210821
  2. LORLATINIB [Suspect]
     Active Substance: LORLATINIB
     Dosage: 100 MG 1 / 2-0-0
     Dates: start: 2021

REACTIONS (11)
  - Death [Fatal]
  - Empyema [Recovering/Resolving]
  - Altered state of consciousness [Recovering/Resolving]
  - Hallucination [Recovering/Resolving]
  - Hallucination, visual [Recovering/Resolving]
  - Dyspnoea [Unknown]
  - C-reactive protein increased [Unknown]
  - Haemoglobin decreased [Unknown]
  - Red blood cell count decreased [Unknown]
  - Off label use [Unknown]
  - Wrong technique in product usage process [Unknown]

NARRATIVE: CASE EVENT DATE: 20210101
